FAERS Safety Report 4531648-1 (Version None)
Quarter: 2004Q4

REPORT INFORMATION
  Report Type: 
  Country: None (occurrence: None)
  Receive Date: 20041220
  Receipt Date: 20041019
  Transmission Date: 20050328
  Serious: Yes (Death)
  Sender: FDA-Public Use
  Company Number: 200413245JP

PATIENT
  Age: 78 Year
  Sex: Female
  Weight: 34.8 kg

DRUGS (9)
  1. KETEK [Suspect]
     Indication: BRONCHITIS ACUTE
     Route: 048
     Dates: start: 20040928, end: 20041016
  2. HALOSPOR [Suspect]
     Route: 041
     Dates: start: 20040928, end: 20041012
  3. NEUER [Concomitant]
     Dosage: DOSE: 2CAPSULES
     Route: 048
     Dates: start: 20040928, end: 20041016
  4. CLEANAL [Concomitant]
     Dosage: DOSE: 4TABLETS
     Route: 048
     Dates: start: 20040928, end: 20041009
  5. THEOLONG [Concomitant]
     Dosage: DOSE: 2TABLETS
     Route: 048
     Dates: start: 20040928, end: 20041009
  6. MUCOSOLVAN [Concomitant]
     Dosage: DOSE: 1CAPSULE
     Route: 048
     Dates: start: 20040928, end: 20041016
  7. ALESION [Concomitant]
     Dosage: DOSE: 1TABLET
     Route: 048
     Dates: start: 20040928, end: 20041009
  8. LINCOCIN [Concomitant]
     Route: 041
     Dates: start: 20041014, end: 20041016
  9. FOSMICIN [Concomitant]
     Route: 041
     Dates: start: 20041015, end: 20041015

REACTIONS (8)
  - CARDIAC FAILURE [None]
  - HEPATIC FAILURE [None]
  - HEPATIC FUNCTION ABNORMAL [None]
  - IRON BINDING CAPACITY TOTAL DECREASED [None]
  - LABORATORY TEST ABNORMAL [None]
  - SERUM FERRITIN INCREASED [None]
  - SHOCK [None]
  - WHITE BLOOD CELL COUNT INCREASED [None]
